FAERS Safety Report 12919617 (Version 1)
Quarter: 2016Q4

REPORT INFORMATION
  Report Type: Spontaneous
  Country: US (occurrence: US)
  Receive Date: 20161103
  Receipt Date: 20161103
  Transmission Date: 20170207
  Serious: No
  Sender: FDA-Public Use
  Company Number: None

PATIENT
  Age: 64 Year
  Sex: Female

DRUGS (1)
  1. NEXAVAR [Suspect]
     Active Substance: SORAFENIB
     Indication: HEPATIC CANCER
     Dosage: NEXAVAR 200MG - 2 TABLETS TWICE A DAY - PO - (400 MG)
     Route: 048
     Dates: start: 20110914

REACTIONS (3)
  - Pain in extremity [None]
  - Vomiting [None]
  - Hypersomnia [None]

NARRATIVE: CASE EVENT DATE: 20160930
